FAERS Safety Report 6553227-7 (Version None)
Quarter: 2010Q1

REPORT INFORMATION
  Report Type: 
  Country: None (occurrence: None)
  Receive Date: 20100127
  Receipt Date: 20090605
  Transmission Date: 20100710
  Serious: No
  Sender: FDA-Public Use
  Company Number: A0777783A

PATIENT
  Age: 36 Year
  Sex: Female
  Weight: 65.9 kg

DRUGS (9)
  1. SUMATRIPTAN SUCCINATE [Suspect]
     Indication: MIGRAINE
  2. GSK AUTOINJECTOR [Suspect]
     Indication: DRUG USE FOR UNKNOWN INDICATION
  3. ABILIFY [Concomitant]
  4. LITHIUM [Concomitant]
  5. CLONAZEPAM [Concomitant]
  6. BENZATROPINE [Concomitant]
     Dosage: 1MG TWICE PER DAY
  7. XANAX [Concomitant]
     Indication: ANXIETY
  8. SEROQUEL [Concomitant]
     Indication: ANXIETY
  9. TRAZODONE [Concomitant]
     Indication: ANXIETY

REACTIONS (3)
  - DEVICE MALFUNCTION [None]
  - INJECTION SITE PAIN [None]
  - PRODUCT QUALITY ISSUE [None]
